FAERS Safety Report 9824535 (Version 1)
Quarter: 2014Q1

REPORT INFORMATION
  Report Type: Spontaneous
  Country: US (occurrence: US)
  Receive Date: 20140117
  Receipt Date: 20140117
  Transmission Date: 20141002
  Serious: No
  Sender: FDA-Public Use
  Company Number: US-GILEAD-2011-0038908

PATIENT
  Sex: Female

DRUGS (1)
  1. LETAIRIS [Suspect]
     Indication: PRODUCT USED FOR UNKNOWN INDICATION
     Route: 048
     Dates: start: 20110208

REACTIONS (5)
  - Depression [Unknown]
  - Fatigue [Unknown]
  - Mood swings [Unknown]
  - Unevaluable event [Unknown]
  - Abdominal distension [Unknown]
